FAERS Safety Report 10012238 (Version 1)
Quarter: 2014Q1

REPORT INFORMATION
  Report Type: Spontaneous
  Country: US (occurrence: None)
  Receive Date: 20140313
  Receipt Date: 20140313
  Transmission Date: 20141002
  Serious: Yes (Other)
  Sender: FDA-Public Use
  Company Number: None

PATIENT
  Age: 58 Year
  Sex: Female
  Weight: 66.23 kg

DRUGS (8)
  1. ACETAZOLAMIDE [Suspect]
     Indication: VITRECTOMY
     Route: 048
     Dates: start: 20131102
  2. ACETAZOLAMIDE [Suspect]
     Indication: INTRAOCULAR PRESSURE TEST ABNORMAL
     Route: 048
     Dates: start: 20131102
  3. PREDFORTE [Concomitant]
  4. ALFAGAN [Concomitant]
  5. CYCLOPENTHALATE EYE DROPS [Concomitant]
  6. BACITRACIX [Concomitant]
  7. POLYMYXIN EYE OINTMENT [Concomitant]
  8. EXTRA STRENGTH TYLENOL [Concomitant]

REACTIONS (1)
  - Dyspepsia [None]
